FAERS Safety Report 15730873 (Version 2)
Quarter: 2018Q4

REPORT INFORMATION
  Report Type: Spontaneous
  Country: JP (occurrence: JP)
  Receive Date: 20181217
  Receipt Date: 20181221
  Transmission Date: 20190205
  Serious: Yes (Life-Threatening)
  Sender: FDA-Public Use
  Company Number: JP-PFIZER INC-2018514408

PATIENT
  Sex: Male

DRUGS (10)
  1. DEXAMETHASONE. [Suspect]
     Active Substance: DEXAMETHASONE
     Indication: GRAFT VERSUS HOST DISEASE
  2. METHOTREXATE. [Concomitant]
     Active Substance: METHOTREXATE
     Indication: ACUTE MYELOID LEUKAEMIA
     Dosage: UNK, CYCLIC
     Route: 037
  3. METHYLPREDNISOLONE SODIUM SUCCINATE. [Suspect]
     Active Substance: METHYLPREDNISOLONE SODIUM SUCCINATE
     Indication: ACUTE MYELOID LEUKAEMIA
     Dosage: 1875 MG/M2, UNK
  4. PREDNISONE. [Suspect]
     Active Substance: PREDNISONE
     Indication: ACUTE MYELOID LEUKAEMIA
     Dosage: 9781 MG/M2, UNK
     Route: 048
  5. BUSULFAN. [Concomitant]
     Active Substance: BUSULFAN
     Indication: ACUTE MYELOID LEUKAEMIA
     Dosage: UNK, CYCLIC
  6. FLUDARABINE [Concomitant]
     Active Substance: FLUDARABINE PHOSPHATE
     Indication: ACUTE MYELOID LEUKAEMIA
     Dosage: UNK, CYCLIC
  7. DEXAMETHASONE. [Suspect]
     Active Substance: DEXAMETHASONE
     Indication: ACUTE MYELOID LEUKAEMIA
     Dosage: 237 MG/M2, UNK
     Route: 048
  8. PREDNISONE. [Suspect]
     Active Substance: PREDNISONE
     Indication: CHRONIC GRAFT VERSUS HOST DISEASE
  9. CYTARABINE. [Concomitant]
     Active Substance: CYTARABINE
     Indication: ACUTE MYELOID LEUKAEMIA
     Dosage: UNK, CYCLIC
     Route: 037
  10. MELPHALAN. [Concomitant]
     Active Substance: MELPHALAN
     Indication: ACUTE MYELOID LEUKAEMIA
     Dosage: UNK, CYCLIC

REACTIONS (1)
  - Adrenal insufficiency [Recovering/Resolving]
